FAERS Safety Report 18567764 (Version 9)
Quarter: 2021Q3

REPORT INFORMATION
  Report Type: Other
  Country: IT (occurrence: IT)
  Receive Date: 20201202
  Receipt Date: 20210709
  Transmission Date: 20211014
  Serious: Yes (Other)
  Sender: FDA-Public Use
  Company Number: IT-ROCHE-2504650

PATIENT
  Age: 63 Year
  Sex: Male

DRUGS (4)
  1. SULFAMETHOXAZOLE/TRIMETHOPRIM [Suspect]
     Active Substance: SULFAMETHOXAZOLE\TRIMETHOPRIM
     Indication: PRODUCT USED FOR UNKNOWN INDICATION
     Dosage: DOSE? 800?160MG; 1CP/BIS
     Route: 065
     Dates: start: 20190902
  2. OBINUTUZUMAB. [Suspect]
     Active Substance: OBINUTUZUMAB
     Indication: FOLLICULAR LYMPHOMA
     Dosage: DAY 1, 8, 15 OF CYCLE 1 AN DAY 1 OF CYCLES 2?6 OR 2?8
     Route: 042
     Dates: start: 20190902
  3. HEPARIN [Concomitant]
     Active Substance: HEPARIN SODIUM
     Dates: start: 20201029, end: 20201229
  4. BACTRIM [Concomitant]
     Active Substance: SULFAMETHOXAZOLE\TRIMETHOPRIM
     Dosage: 800?160MG; 1CP/BIS
     Dates: start: 20190902

REACTIONS (7)
  - Rash erythematous [Recovered/Resolved]
  - Off label use [Unknown]
  - Oedema peripheral [Recovered/Resolved]
  - Bronchitis [Recovered/Resolved]
  - Thrombocytopenia [Unknown]
  - Folate deficiency [Unknown]
  - Erythema [Recovered/Resolved]

NARRATIVE: CASE EVENT DATE: 20190909
